FAERS Safety Report 5614908-2 (Version None)
Quarter: 2008Q1

REPORT INFORMATION
  Report Type: 
  Country: None (occurrence: None)
  Receive Date: 20080206
  Receipt Date: 20080128
  Transmission Date: 20080703
  Serious: Yes (Other)
  Sender: FDA-Public Use
  Company Number: US-BAYER-US-2007-037352

PATIENT
  Age: 26 Year
  Sex: Female
  Weight: 67 kg

DRUGS (1)
  1. MIRENA [Suspect]
     Indication: CONTRACEPTION
     Route: 015
     Dates: start: 20070907, end: 20070918

REACTIONS (3)
  - ABDOMINAL PAIN LOWER [None]
  - IUD MIGRATION [None]
  - PROCEDURAL COMPLICATION [None]
